FAERS Safety Report 7101047-7 (Version None)
Quarter: 2010Q4

REPORT INFORMATION
  Report Type: 
  Country: None (occurrence: None)
  Receive Date: 20101113
  Receipt Date: 20100420
  Transmission Date: 20110411
  Serious: No
  Sender: FDA-Public Use
  Company Number: US-ALLERGAN-1005187US

PATIENT
  Age: 39 Year
  Sex: Female

DRUGS (5)
  1. BOTOXA? [Suspect]
     Indication: MUSCLE SPASTICITY
     Dosage: UNK
     Route: 030
     Dates: start: 20100301, end: 20100301
  2. TRAMADOL HCL [Concomitant]
  3. AMBIEN [Concomitant]
     Indication: INSOMNIA
  4. LEXAPRO [Concomitant]
  5. NIACIN [Concomitant]
     Indication: HYPERCHOLESTEROLAEMIA

REACTIONS (6)
  - DIZZINESS [None]
  - DRY MOUTH [None]
  - FATIGUE [None]
  - INFLUENZA [None]
  - THERAPEUTIC RESPONSE DECREASED [None]
  - VISION BLURRED [None]
